FAERS Safety Report 4515625-2 (Version None)
Quarter: 2004Q4

REPORT INFORMATION
  Report Type: 
  Country: None (occurrence: None)
  Receive Date: 20041126
  Receipt Date: 20041117
  Transmission Date: 20050328
  Serious: Yes (Hospitalization, Other)
  Sender: FDA-Public Use
  Company Number: 2004095235

PATIENT
  Age: 72 Year
  Sex: Female

DRUGS (1)
  1. NEURONTIN [Suspect]
     Indication: ILL-DEFINED DISORDER
     Dosage: 900 MG (1 D), ORAL
     Route: 048
     Dates: start: 20040215, end: 20040527

REACTIONS (5)
  - EOSINOPHIL PERCENTAGE INCREASED [None]
  - EPILEPSY [None]
  - HAEMOGLOBIN DECREASED [None]
  - PRURITUS [None]
  - TOXIC SKIN ERUPTION [None]
